FAERS Safety Report 15346519 (Version 2)
Quarter: 2018Q3

REPORT INFORMATION
  Report Type: Spontaneous
  Country: US (occurrence: US)
  Receive Date: 20180904
  Receipt Date: 20180906
  Transmission Date: 20181010
  Serious: No
  Sender: FDA-Public Use
  Company Number: US-PFIZER INC-2018354120

PATIENT
  Sex: Female

DRUGS (2)
  1. ADVIL [Suspect]
     Active Substance: IBUPROFEN
     Indication: ARTHRALGIA
     Dosage: 800 MG, DAILY(TAKING FOUR ADVIL REGULAR TABLETS IN ONE SHOT AT NIGHT)
     Route: 048
  2. ADVIL PM [Suspect]
     Active Substance: DIPHENHYDRAMINE CITRATE\IBUPROFEN
     Indication: ARTHRALGIA
     Dosage: 2 CAPLETS, DAILY AT NIGHT(TWO AT NIGHT)

REACTIONS (2)
  - Intentional product use issue [Unknown]
  - Gait disturbance [Unknown]
